FAERS Safety Report 6784569-8 (Version None)
Quarter: 2010Q2

REPORT INFORMATION
  Report Type: 
  Country: None (occurrence: None)
  Receive Date: 20100622
  Receipt Date: 20100616
  Transmission Date: 20101027
  Serious: Yes (Hospitalization)
  Sender: FDA-Public Use
  Company Number: A0789991A

PATIENT
  Age: 50 Year
  Sex: Female

DRUGS (6)
  1. AVANDIA [Suspect]
     Dosage: 8MG PER DAY
     Route: 048
     Dates: start: 20000101, end: 20020301
  2. INSULIN [Concomitant]
  3. LOPID [Concomitant]
  4. GLUCOPHAGE [Concomitant]
  5. TENORMIN [Concomitant]
  6. LOTENSIN [Concomitant]

REACTIONS (4)
  - BRAIN STEM STROKE [None]
  - CARDIAC DISORDER [None]
  - CARDIOVASCULAR DISORDER [None]
  - CEREBRAL INFARCTION [None]
